FAERS Safety Report 5225455-4 (Version None)
Quarter: 2007Q1

REPORT INFORMATION
  Report Type: 
  Country: None (occurrence: None)
  Receive Date: 20070131
  Receipt Date: 20070119
  Transmission Date: 20070707
  Serious: Yes (Death, Hospitalization, Congenital Anomaly)
  Sender: FDA-Public Use
  Company Number: DE-PFIZER INC-2006054853

PATIENT
  Sex: Male
  Weight: 66.2 kg

DRUGS (6)
  1. SU-011,248 [Suspect]
     Indication: METASTATIC RENAL CELL CARCINOMA
     Route: 048
     Dates: start: 20060330, end: 20060419
  2. MST [Suspect]
     Route: 048
  3. DICLOFENAC SODIUM [Concomitant]
     Route: 048
  4. OMEPRAZOLE [Concomitant]
     Route: 048
  5. DIPYRONE INJ [Concomitant]
     Route: 048
  6. MOVICOL [Concomitant]
     Route: 048

REACTIONS (4)
  - DEATH [None]
  - DIARRHOEA [None]
  - DIZZINESS [None]
  - PNEUMONIA [None]
